FAERS Safety Report 5253839-7 (Version None)
Quarter: 2007Q1

REPORT INFORMATION
  Report Type: 
  Country: None (occurrence: None)
  Receive Date: 20070227
  Receipt Date: 20070215
  Transmission Date: 20070707
  Serious: Yes (Hospitalization)
  Sender: FDA-Public Use
  Company Number: 236744

PATIENT
  Age: 68 Year
  Sex: Male
  Weight: 100.2 kg

DRUGS (3)
  1. AVASTIN [Suspect]
     Indication: PANCREATIC CARCINOMA
     Dosage: 525 MG, Q3W, INTRAVENOUS
     Route: 042
     Dates: start: 20060411
  2. FLUOROURACIL [Suspect]
     Indication: PANCREATIC CARCINOMA
     Dosage: 5540 MG, Q3W, INTRAVENOUS
     Route: 042
     Dates: start: 20060411
  3. LEUCOVORIN CALCIUM [Suspect]
     Indication: PANCREATIC CARCINOMA
     Dosage: 460 MG, Q3W, INTRAVENOUS
     Route: 042
     Dates: start: 20060411

REACTIONS (2)
  - DIARRHOEA [None]
  - HYPOGLYCAEMIA [None]
